FAERS Safety Report 7521759-0 (Version None)
Quarter: 2011Q2

REPORT INFORMATION
  Report Type: 
  Country: None (occurrence: None)
  Receive Date: 20110524
  Receipt Date: 20110513
  Transmission Date: 20111010
  Serious: Yes (Hospitalization, Other)
  Sender: FDA-Public Use
  Company Number: 2010SP028269

PATIENT
  Age: 38 Year
  Sex: Female
  Weight: 65.7716 kg

DRUGS (5)
  1. NUVARING [Suspect]
     Indication: CONTRACEPTION
     Dates: start: 20051001, end: 20080517
  2. NULTIVITAMINS [Concomitant]
  3. ASCORBIC ACID [Concomitant]
  4. FERROUS SULFATE TAB [Concomitant]
  5. VITAMIN B-12 [Concomitant]

REACTIONS (5)
  - THYROID DISORDER [None]
  - NEOPLASM [None]
  - DEEP VEIN THROMBOSIS [None]
  - MALIGNANT MELANOMA [None]
  - PULMONARY EMBOLISM [None]
